FAERS Safety Report 13309375 (Version 1)
Quarter: 2017Q1

REPORT INFORMATION
  Report Type: Spontaneous
  Country: US (occurrence: US)
  Receive Date: 20170309
  Receipt Date: 20170309
  Transmission Date: 20170428
  Serious: Yes (Hospitalization, Other)
  Sender: FDA-Public Use
  Company Number: US-PFIZER INC-2017096684

PATIENT
  Age: 28 Year
  Sex: Male

DRUGS (1)
  1. DIPHENHYDRAMINE HCL [Suspect]
     Active Substance: DIPHENHYDRAMINE HYDROCHLORIDE
     Indication: INSOMNIA
     Dosage: 400 MG, DAILY  (NIGHTLY OVER THE PREVIOUS 4 MONTHS)
     Route: 048

REACTIONS (1)
  - Drug-induced liver injury [Recovered/Resolved]
